FAERS Safety Report 10152770 (Version 1)
Quarter: 2014Q2

REPORT INFORMATION
  Report Type: Spontaneous
  Country: CA (occurrence: CA)
  Receive Date: 20140505
  Receipt Date: 20140505
  Transmission Date: 20141212
  Serious: Yes (Disabling)
  Sender: FDA-Public Use
  Company Number: CA-PFIZER INC-2014121483

PATIENT
  Age: 66 Year
  Sex: Female
  Weight: 77.1 kg

DRUGS (6)
  1. PANTOPRAZOLE [Suspect]
     Dosage: 40 MG, 1X/DAY
     Route: 048
  2. AMLODIPINE [Concomitant]
  3. MEDROXY-2.5 [Concomitant]
  4. PAROXETINE [Concomitant]
     Dosage: UNK
  5. PREMARIN [Concomitant]
     Dosage: UNK
  6. SYNTHROID [Concomitant]

REACTIONS (15)
  - Onychomycosis [Recovered/Resolved with Sequelae]
  - Palpitations [Recovered/Resolved with Sequelae]
  - Vaginal haemorrhage [Recovered/Resolved with Sequelae]
  - Appendicitis [Recovered/Resolved with Sequelae]
  - Bladder pain [Recovered/Resolved with Sequelae]
  - Abdominal pain [Recovered/Resolved with Sequelae]
  - Dizziness [Recovered/Resolved with Sequelae]
  - Fatigue [Recovered/Resolved with Sequelae]
  - Hypersomnia [Recovered/Resolved with Sequelae]
  - Malaise [Recovered/Resolved with Sequelae]
  - Myalgia [Recovered/Resolved with Sequelae]
  - Nausea [Recovered/Resolved with Sequelae]
  - Psoriasis [Recovered/Resolved with Sequelae]
  - Urticaria [Recovered/Resolved with Sequelae]
  - Condition aggravated [Recovered/Resolved with Sequelae]
